FAERS Safety Report 6758422-X (Version None)
Quarter: 2010Q2

REPORT INFORMATION
  Report Type: 
  Country: None (occurrence: None)
  Receive Date: 20100603
  Receipt Date: 20100524
  Transmission Date: 20101027
  Serious: Yes (Death)
  Sender: FDA-Public Use
  Company Number: 601736

PATIENT
  Age: 51 Year
  Sex: Female

DRUGS (2)
  1. HEPARIN SODIUM [Suspect]
     Indication: DEEP VEIN THROMBOSIS
  2. COUMADIN [Concomitant]

REACTIONS (11)
  - CYANOSIS [None]
  - DEPRESSED LEVEL OF CONSCIOUSNESS [None]
  - HEPARIN-INDUCED THROMBOCYTOPENIA [None]
  - ISCHAEMIC CEREBRAL INFARCTION [None]
  - MENTAL STATUS CHANGES [None]
  - MULTI-ORGAN FAILURE [None]
  - OEDEMA PERIPHERAL [None]
  - PAIN IN EXTREMITY [None]
  - PALLOR [None]
  - RASH ERYTHEMATOUS [None]
  - THROMBOSIS [None]
